FAERS Safety Report 15175273 (Version 1)
Quarter: 2018Q3

REPORT INFORMATION
  Report Type: Report from Study
  Country: NL (occurrence: NL)
  Receive Date: 20180720
  Receipt Date: 20180720
  Transmission Date: 20181010
  Serious: Yes (Other)
  Sender: FDA-Public Use
  Company Number: NL-MYLANLABS-2018M1053512

PATIENT
  Age: 12 Year
  Sex: Male

DRUGS (4)
  1. HALOPERIDOL. [Suspect]
     Active Substance: HALOPERIDOL
     Dosage: ON DAY 2 AND DAY 3
     Route: 042
  2. HALOPERIDOL. [Suspect]
     Active Substance: HALOPERIDOL
     Dosage: ON DAY 1, ADMINISTERED WITH LOADING DOSE
     Route: 042
  3. HALOPERIDOL. [Suspect]
     Active Substance: HALOPERIDOL
     Indication: DELIRIUM
     Dosage: LOADING DOSE ON DAY 1
     Route: 042
  4. HALOPERIDOL. [Suspect]
     Active Substance: HALOPERIDOL
     Dosage: ON DAY 4
     Route: 042

REACTIONS (5)
  - Torticollis [Recovered/Resolved]
  - Prescribed overdose [Recovered/Resolved]
  - Trismus [Recovered/Resolved]
  - Off label use [Recovered/Resolved]
  - Sedation [Recovered/Resolved]
